FAERS Safety Report 4704950-8 (Version None)
Quarter: 2005Q2

REPORT INFORMATION
  Report Type: 
  Country: None (occurrence: None)
  Receive Date: 20050630
  Receipt Date: 20050630
  Transmission Date: 20051028
  Serious: Yes (Life-Threatening)
  Sender: FDA-Public Use
  Company Number: None

PATIENT
  Sex: Male
  Weight: 83.0083 kg

DRUGS (5)
  1. ZYPREXA [Suspect]
     Indication: DEPRESSION
     Dosage: 5MG   QHS   ORAL
     Route: 048
     Dates: start: 20050607, end: 20050616
  2. ZYPREXA [Suspect]
     Indication: INSOMNIA
     Dosage: 5MG   QHS   ORAL
     Route: 048
     Dates: start: 20050607, end: 20050616
  3. REMERON [Concomitant]
  4. ZOCOR [Concomitant]
  5. WELLBUTRIN XL [Concomitant]

REACTIONS (2)
  - HEPATITIS ACUTE [None]
  - HYPERBILIRUBINAEMIA [None]
